FAERS Safety Report 15729133 (Version 1)
Quarter: 2018Q4

REPORT INFORMATION
  Report Type: Spontaneous
  Country: US (occurrence: US)
  Receive Date: 20181215
  Receipt Date: 20181215
  Transmission Date: 20190205
  Serious: Yes (Disabling)
  Sender: FDA-Public Use
  Company Number: None

PATIENT
  Age: 23 Year
  Sex: Female
  Weight: 56.25 kg

DRUGS (2)
  1. CLONAZEPAM. [Suspect]
     Active Substance: CLONAZEPAM
     Indication: ANXIETY
     Route: 048
  2. LORAZEPAM. [Suspect]
     Active Substance: LORAZEPAM
     Indication: ANXIETY
     Dosage: ?          QUANTITY:1 TABLET(S);?
     Route: 048
     Dates: start: 20180102, end: 20180708

REACTIONS (17)
  - Sleep disorder [None]
  - Fatigue [None]
  - Somnolence [None]
  - Headache [None]
  - Anxiety [None]
  - Irritability [None]
  - Dizziness [None]
  - Akathisia [None]
  - Depression [None]
  - Suicidal ideation [None]
  - Visual impairment [None]
  - Panic disorder [None]
  - Tinnitus [None]
  - Tachycardia [None]
  - Muscle spasms [None]
  - Dysphoria [None]
  - Insomnia [None]

NARRATIVE: CASE EVENT DATE: 20180915
